FAERS Safety Report 4553778-0 (Version None)
Quarter: 2005Q1

REPORT INFORMATION
  Report Type: 
  Country: None (occurrence: None)
  Receive Date: 20050112
  Receipt Date: 20050112
  Transmission Date: 20050727
  Serious: Yes (Other)
  Sender: FDA-Public Use
  Company Number: None

PATIENT
  Age: 61 Year
  Sex: Female
  Weight: 68.4932 kg

DRUGS (6)
  1. OXALIPLATIN (OXO-30-060 PROTOCOL L-9083) [Suspect]
     Indication: NEOPLASM RECURRENCE
     Dosage: 130.0 MG/M2 Q21 DAYS OVER 2 HOURS
     Dates: start: 20041221
  2. OXALIPLATIN (OXO-30-060 PROTOCOL L-9083) [Suspect]
     Indication: OVARIAN CANCER
     Dosage: 130.0 MG/M2 Q21 DAYS OVER 2 HOURS
     Dates: start: 20041221
  3. OXALIPLATIN (OXO-30-060 PROTOCOL L-9083) [Suspect]
  4. PACLITAXEL [Suspect]
     Dosage: 175.0 MG/M2 Q 21 DAYS OVER 2 HOUR
     Dates: start: 20041221
  5. ARANESP [Concomitant]
  6. NEULASTA [Concomitant]

REACTIONS (4)
  - BRONCHOSPASM [None]
  - DYSPNOEA [None]
  - MUSCLE SPASMS [None]
  - MUSCLE TIGHTNESS [None]
